FAERS Safety Report 8087068-9 (Version None)
Quarter: 2012Q1

REPORT INFORMATION
  Report Type: 
  Country: None (occurrence: None)
  Receive Date: 20120128
  Receipt Date: 20110615
  Transmission Date: 20120608
  Serious: Yes (Hospitalization)
  Sender: FDA-Public Use
  Company Number: US-ABBOTT-11P-163-0834488-00

PATIENT
  Sex: Female
  Weight: 61.29 kg

DRUGS (10)
  1. HUMIRA [Suspect]
     Indication: CROHN'S DISEASE
     Dates: start: 20110412
  2. PROZAC [Concomitant]
     Indication: DEPRESSION
  3. MAGNESIUM SULFATE [Concomitant]
     Indication: MINERAL SUPPLEMENTATION
  4. ROXICODONE [Concomitant]
     Indication: PAIN
  5. TEMAZEPAM [Concomitant]
     Indication: INSOMNIA
  6. SYNTHROID [Concomitant]
     Indication: HYPOTHYROIDISM
  7. DIAZEPAM [Concomitant]
     Indication: ANXIETY
  8. PHOSLO [Concomitant]
     Indication: CROHN'S DISEASE
  9. CALCIUM [Concomitant]
     Indication: MINERAL SUPPLEMENTATION
  10. LASIX [Concomitant]
     Indication: FLUID RETENTION

REACTIONS (3)
  - DEVICE RELATED INFECTION [None]
  - PYREXIA [None]
  - CATHETER SITE INFLAMMATION [None]
